FAERS Safety Report 22065574 (Version 1)
Quarter: 2023Q1

REPORT INFORMATION
  Report Type: Spontaneous
  Country: US (occurrence: None)
  Receive Date: 20230303
  Receipt Date: 20230303
  Transmission Date: 20230418
  Serious: Yes (Other)
  Sender: FDA-Public Use
  Company Number: None

PATIENT
  Age: 74 Year
  Sex: Female
  Weight: 63 kg

DRUGS (16)
  1. RHOPRESSA [Suspect]
     Active Substance: NETARSUDIL MESYLATE
     Indication: Glaucoma
     Dosage: OTHER QUANTITY : 1 DROP(S);?FREQUENCY : DAILY;?
     Route: 047
     Dates: start: 20230224, end: 20230225
  2. NIFEDIPINE [Concomitant]
     Active Substance: NIFEDIPINE
  3. DORZOLAMIDE [Concomitant]
     Active Substance: DORZOLAMIDE
  4. LEVOTHYROXINE [Concomitant]
     Active Substance: LEVOTHYROXINE
  5. RESTASIS [Concomitant]
     Active Substance: CYCLOSPORINE
  6. ENALAPRIL [Concomitant]
     Active Substance: ENALAPRIL
  7. DORZOLAMIDE\TIMOLOL [Concomitant]
     Active Substance: DORZOLAMIDE\TIMOLOL
  8. LATANOPROST [Concomitant]
     Active Substance: LATANOPROST
  9. ALLOPURINOL [Concomitant]
     Active Substance: ALLOPURINOL
  10. POTASSIUM CHLORIDE [Concomitant]
     Active Substance: POTASSIUM CHLORIDE
  11. CALCIUM [Concomitant]
     Active Substance: CALCIUM
  12. FERROUS SULFATE 65 FE [Concomitant]
  13. PSYLLIUM [Concomitant]
     Active Substance: PLANTAGO SEED
  14. ASA 61MG [Concomitant]
  15. VITAMINS [Concomitant]
     Active Substance: VITAMINS
  16. SYSTANE PF EYE DROPS [Concomitant]

REACTIONS (6)
  - Drug hypersensitivity [None]
  - Instillation site erythema [None]
  - Instillation site swelling [None]
  - Instillation site pruritus [None]
  - Instillation site irritation [None]
  - Lacrimation increased [None]

NARRATIVE: CASE EVENT DATE: 20230224
